FAERS Safety Report 6207801-8 (Version None)
Quarter: 2009Q2

REPORT INFORMATION
  Report Type: 
  Country: None (occurrence: None)
  Receive Date: 20090522
  Receipt Date: 20090511
  Transmission Date: 20091009
  Serious: Yes (Life-Threatening, Hospitalization)
  Sender: FDA-Public Use
  Company Number: 271363

PATIENT
  Age: 65 Year
  Sex: Male

DRUGS (7)
  1. VINCRISTINE [Suspect]
     Indication: GLIOBLASTOMA MULTIFORME
     Dosage: 2 MG, INTRAVENOUS
     Route: 042
     Dates: start: 20081216, end: 20081216
  2. (PROCARBAZINE) [Suspect]
     Indication: GLIOBLASTOMA MULTIFORME
     Dosage: 50 MG, 3 TIMES DAILY, ORAL
     Route: 048
     Dates: start: 20081216, end: 20081225
  3. (LOMUSTINE) [Suspect]
     Indication: GLIOBLASTOMA MULTIFORME
     Dosage: 160 MG, ORAL
     Route: 048
     Dates: start: 20081216, end: 20081216
  4. DEXAMETHASONE [Concomitant]
  5. OMEPRAZOLE [Concomitant]
  6. VALPROATE SODIUM [Concomitant]
  7. (LEVOTHYROXINE) [Concomitant]

REACTIONS (5)
  - ALANINE AMINOTRANSFERASE INCREASED [None]
  - BLOOD ALKALINE PHOSPHATASE INCREASED [None]
  - BLOOD BILIRUBIN INCREASED [None]
  - HEPATOTOXICITY [None]
  - LIVER DISORDER [None]
